FAERS Safety Report 15959195 (Version 1)
Quarter: 2019Q1

REPORT INFORMATION
  Report Type: Spontaneous
  Country: IT (occurrence: IT)
  Receive Date: 20190214
  Receipt Date: 20190214
  Transmission Date: 20190417
  Serious: No
  Sender: FDA-Public Use
  Company Number: IT-LUPIN PHARMACEUTICALS INC.-2019-00557

PATIENT
  Age: 49 Year
  Sex: Female

DRUGS (5)
  1. PAROXETINE. [Suspect]
     Active Substance: PAROXETINE
     Indication: ORAL LICHEN PLANUS
  2. PAROXETINE. [Suspect]
     Active Substance: PAROXETINE
     Indication: BURNING MOUTH SYNDROME
  3. PAROXETINE. [Suspect]
     Active Substance: PAROXETINE
     Indication: DEPRESSION
     Dosage: 20 MG, QD
     Route: 065
     Dates: start: 201301
  4. CLONAZEPAM. [Suspect]
     Active Substance: CLONAZEPAM
     Indication: BURNING MOUTH SYNDROME
     Dosage: UNK
     Route: 061
  5. CLONAZEPAM. [Suspect]
     Active Substance: CLONAZEPAM
     Indication: ORAL LICHEN PLANUS

REACTIONS (2)
  - Constipation [Recovered/Resolved]
  - Nausea [Recovered/Resolved]

NARRATIVE: CASE EVENT DATE: 2013
